FAERS Safety Report 14545502 (Version 1)
Quarter: 2018Q1

REPORT INFORMATION
  Report Type: Spontaneous
  Country: ES (occurrence: ES)
  Receive Date: 20180219
  Receipt Date: 20180219
  Transmission Date: 20180509
  Serious: Yes (Other)
  Sender: FDA-Public Use
  Company Number: ES-VELOXIS PHARMACEUTICALS-2042211

PATIENT
  Age: 44 Year
  Sex: Male

DRUGS (3)
  1. METILPREDNISOLONA /00049601/ [Concomitant]
     Active Substance: METHYLPREDNISOLONE
     Dates: start: 20171227, end: 20180114
  2. COTRIMOXAZOL [Suspect]
     Active Substance: SULFAMETHOXAZOLE\TRIMETHOPRIM
     Route: 042
     Dates: start: 20171228, end: 20180106
  3. ENVARSUS XR [Suspect]
     Active Substance: TACROLIMUS
     Indication: DERMATOMYOSITIS
     Route: 048
     Dates: start: 201711, end: 20180101

REACTIONS (4)
  - Intentional product use issue [Unknown]
  - Metabolic acidosis [Recovered/Resolved]
  - Intentional product misuse [Unknown]
  - Hyperkalaemia [Recovered/Resolved]

NARRATIVE: CASE EVENT DATE: 20180101
